FAERS Safety Report 18190077 (Version 1)
Quarter: 2020Q3

REPORT INFORMATION
  Report Type: Spontaneous
  Country: US (occurrence: US)
  Receive Date: 20200825
  Receipt Date: 20200825
  Transmission Date: 20201103
  Serious: Yes (Other)
  Sender: FDA-Public Use
  Company Number: US-HIKMA PHARMACEUTICALS USA INC.-US-H14001-20-03890

PATIENT
  Sex: Female
  Weight: 59.9 kg

DRUGS (3)
  1. GABAPENTIN. [Suspect]
     Active Substance: GABAPENTIN
     Indication: PRODUCT USED FOR UNKNOWN INDICATION
     Dosage: UNKNOWN
     Route: 065
  2. MORPHINE [Suspect]
     Active Substance: MORPHINE
     Indication: PRODUCT USED FOR UNKNOWN INDICATION
     Route: 048
     Dates: start: 2016
  3. LINZESS [Suspect]
     Active Substance: LINACLOTIDE
     Indication: IRRITABLE BOWEL SYNDROME
     Route: 048
     Dates: start: 20200625, end: 20200728

REACTIONS (9)
  - Constipation [Unknown]
  - Drug interaction [Unknown]
  - Chest pain [Unknown]
  - Abdominal distension [Unknown]
  - Malaise [Unknown]
  - Dyspnoea [Unknown]
  - Diarrhoea [Unknown]
  - Drug ineffective [Unknown]
  - Myocardial infarction [Unknown]
